FAERS Safety Report 7783359-7 (Version None)
Quarter: 2011Q3

REPORT INFORMATION
  Report Type: 
  Country: None (occurrence: None)
  Receive Date: 20110928
  Receipt Date: 20110920
  Transmission Date: 20111222
  Serious: Yes (Hospitalization)
  Sender: FDA-Public Use
  Company Number: US-AMGEN-USASP2011048415

PATIENT
  Age: 55 Year
  Sex: Female

DRUGS (1)
  1. ENBREL [Suspect]
     Indication: RHEUMATOID ARTHRITIS
     Dosage: 50 MG, QWK
     Dates: start: 19980101

REACTIONS (9)
  - HYPOTHALAMO-PITUITARY DISORDER [None]
  - PAIN [None]
  - WHITE BLOOD CELL COUNT DECREASED [None]
  - ADRENAL DISORDER [None]
  - NODULE [None]
  - SEASONAL ALLERGY [None]
  - ONYCHOMYCOSIS [None]
  - THERAPEUTIC RESPONSE DECREASED [None]
  - SINUSITIS [None]
